FAERS Safety Report 8415459-2 (Version None)
Quarter: 2012Q2

REPORT INFORMATION
  Report Type: 
  Country: None (occurrence: None)
  Receive Date: 20120606
  Receipt Date: 20120601
  Transmission Date: 20120825
  Serious: Yes (Other)
  Sender: FDA-Public Use
  Company Number: PHHY2012CA047758

PATIENT
  Sex: Female

DRUGS (3)
  1. LYRICA [Suspect]
  2. TEGRETOL [Suspect]
  3. COPAXONE [Concomitant]

REACTIONS (1)
  - DIABETES MELLITUS [None]
